FAERS Safety Report 22070825 (Version 1)
Quarter: 2023Q1

REPORT INFORMATION
  Report Type: Spontaneous
  Country: US (occurrence: US)
  Receive Date: 20230307
  Receipt Date: 20230307
  Transmission Date: 20230417
  Serious: No
  Sender: FDA-Public Use
  Company Number: US-FreseniusKabi-FK202302483

PATIENT
  Age: 60 Year
  Sex: Male
  Weight: 121 kg

DRUGS (4)
  1. CISATRACURIUM BESYLATE [Suspect]
     Active Substance: CISATRACURIUM BESYLATE
     Indication: Paralysis
     Dosage: ASKED BUT UNKNOWN ?20 MG X1?CISATRACURIUM 20MG/10ML VIALS
     Route: 042
     Dates: start: 20230223, end: 20230223
  2. DEXAMETHASONE [Concomitant]
     Active Substance: DEXAMETHASONE
     Indication: Product used for unknown indication
     Dosage: 5 MG IV X1
     Route: 042
  3. LIDOCAINE [Concomitant]
     Active Substance: LIDOCAINE
     Indication: Product used for unknown indication
     Dosage: 2 PERCENT 40 MG IV X1
     Route: 042
  4. SEVOFLURANE [Concomitant]
     Active Substance: SEVOFLURANE
     Indication: Product used for unknown indication

REACTIONS (1)
  - Drug ineffective [Unknown]

NARRATIVE: CASE EVENT DATE: 20230223
